FAERS Safety Report 8592491-X (Version None)
Quarter: 2012Q3

REPORT INFORMATION
  Report Type: 
  Country: None (occurrence: None)
  Receive Date: 20120814
  Receipt Date: 20120802
  Transmission Date: 20120928
  Serious: Yes (Hospitalization, Other)
  Sender: FDA-Public Use
  Company Number: US-009507513-1203USA01845

PATIENT

DRUGS (1)
  1. FOSAMAX [Suspect]
     Indication: OSTEOPOROSIS
     Dosage: 70 MG, UNK
     Route: 048
     Dates: start: 20050101, end: 20101001

REACTIONS (6)
  - PANCREATITIS [None]
  - FRACTURE DELAYED UNION [None]
  - DEVICE FAILURE [None]
  - ADVERSE EVENT [None]
  - FEMUR FRACTURE [None]
  - ARTHROPATHY [None]
